FAERS Safety Report 6314867-3 (Version None)
Quarter: 2009Q3

REPORT INFORMATION
  Report Type: 
  Country: None (occurrence: None)
  Receive Date: 20090817
  Receipt Date: 20090817
  Transmission Date: 20100115
  Serious: No
  Sender: FDA-Public Use
  Company Number: None

PATIENT
  Age: 67 Year
  Sex: Male
  Weight: 97.5234 kg

DRUGS (2)
  1. GENERLAC [Suspect]
     Indication: CONSTIPATION
     Dosage: 30ML H.S. 047
     Dates: start: 20090711
  2. INSULIN INJECTION [Concomitant]

REACTIONS (4)
  - DRUG EFFECT DECREASED [None]
  - PRODUCT SUBSTITUTION ISSUE [None]
  - PRODUCT TASTE ABNORMAL [None]
  - TREATMENT FAILURE [None]
